FAERS Safety Report 8488318-7 (Version None)
Quarter: 2012Q3

REPORT INFORMATION
  Report Type: 
  Country: None (occurrence: None)
  Receive Date: 20120705
  Receipt Date: 20120703
  Transmission Date: 20120928
  Serious: Yes (Death, Other)
  Sender: FDA-Public Use
  Company Number: PHHY2012JP056660

PATIENT
  Sex: Male

DRUGS (5)
  1. IMATINIB MESYLATE [Suspect]
     Indication: ACUTE LYMPHOCYTIC LEUKAEMIA
  2. ETOPOSIDE [Concomitant]
     Dosage: 30 MG/KG
  3. CYCLOSPORINE [Concomitant]
  4. RADIOTHERAPY [Concomitant]
     Dosage: 12 GY
     Dates: start: 20091208
  5. CYCLOPHOSPHAMIDE [Concomitant]
     Dosage: 120 MG/KG

REACTIONS (4)
  - NEOPLASM MALIGNANT [None]
  - LEUKAEMIA RECURRENT [None]
  - MULTI-ORGAN FAILURE [None]
  - NEOPLASM PROGRESSION [None]
